FAERS Safety Report 8651607 (Version 3)
Quarter: 2013Q2

REPORT INFORMATION
  Report Type: Spontaneous
  Country: US (occurrence: US)
  Receive Date: 20120706
  Receipt Date: 20130424
  Transmission Date: 20140414
  Serious: Yes (Hospitalization, Disabling)
  Sender: FDA-Public Use
  Company Number: US-BAYER-2012-065485

PATIENT
  Age: 24 Year
  Sex: Female
  Weight: 58.96 kg

DRUGS (9)
  1. YASMIN [Suspect]
     Indication: CONTRACEPTION
     Dosage: UNK
     Dates: start: 20040125, end: 20080721
  2. YASMIN [Suspect]
     Indication: ACNE
  3. YASMIN [Suspect]
     Indication: PREMENSTRUAL SYNDROME
  4. OCELLA [Suspect]
     Indication: CONTRACEPTION
     Dosage: UNK
     Dates: start: 20080912, end: 201012
  5. OCELLA [Suspect]
     Indication: ACNE
  6. OCELLA [Suspect]
     Indication: PREMENSTRUAL SYNDROME
  7. CELEXA [Concomitant]
  8. PROZAC [Concomitant]
  9. BUSPAR [Concomitant]

REACTIONS (7)
  - Deep vein thrombosis [None]
  - Injury [None]
  - Pain [None]
  - Deformity [None]
  - Anxiety [None]
  - Anhedonia [None]
  - Mental disorder [None]
